FAERS Safety Report 21188534 (Version 1)
Quarter: 2022Q3

REPORT INFORMATION
  Report Type: Spontaneous
  Country: US (occurrence: US)
  Receive Date: 20220809
  Receipt Date: 20220809
  Transmission Date: 20221026
  Serious: No
  Sender: FDA-Public Use
  Company Number: US-IGSA-BIG0016401

PATIENT
  Age: 34 Year
  Sex: Female

DRUGS (8)
  1. GAMUNEX-C [Suspect]
     Active Substance: HUMAN IMMUNOGLOBULIN G
     Indication: Transplant
     Dosage: 25 GRAM, QD
     Route: 042
     Dates: start: 20211013
  2. ZYRTEC [Concomitant]
     Active Substance: CETIRIZINE HYDROCHLORIDE
     Indication: Premedication
     Dosage: 10 MILLIGRAM
     Dates: start: 20211013
  3. APAP [Concomitant]
     Active Substance: ACETAMINOPHEN
     Indication: Premedication
     Dosage: 500 MILLIGRAM
     Dates: start: 20211013
  4. DEXTROSE [Concomitant]
     Active Substance: DEXTROSE
     Dosage: 9.6 MILLILITER
     Route: 042
     Dates: start: 20211013
  5. TACROLIMUS [Concomitant]
     Active Substance: TACROLIMUS
     Dosage: 1 MILLIGRAM, QD
  6. MYCOPHENOLIC ACID [Concomitant]
     Active Substance: MYCOPHENOLIC ACID
     Dosage: 250 MILLIGRAM
  7. PREDNISONE [Concomitant]
     Active Substance: PREDNISONE
     Dosage: 7.5 MILLIGRAM, QD
  8. NORVASC [Concomitant]
     Active Substance: AMLODIPINE BESYLATE
     Dosage: 5 MILLIGRAM, QD

REACTIONS (4)
  - Product dose omission issue [Unknown]
  - Extravasation [Unknown]
  - Administration site pain [Unknown]
  - Administration site irritation [Unknown]

NARRATIVE: CASE EVENT DATE: 20211014
